FAERS Safety Report 18986408 (Version 3)
Quarter: 2021Q1

REPORT INFORMATION
  Report Type: Spontaneous
  Country: US (occurrence: US)
  Receive Date: 20210309
  Receipt Date: 20210318
  Transmission Date: 20210420
  Serious: Yes (Other)
  Sender: FDA-Public Use
  Company Number: US-AMGEN-USASP2021034299

PATIENT
  Age: 62 Year
  Sex: Female
  Weight: 73.94 kg

DRUGS (18)
  1. ASPIR [Concomitant]
     Active Substance: ASPIRIN
     Dosage: 81 MILLIGRAM, QD
     Route: 048
  2. VENTOLIN HFA [Concomitant]
     Active Substance: ALBUTEROL SULFATE
     Route: 065
  3. AMLODIPINE BESYLATE. [Concomitant]
     Active Substance: AMLODIPINE BESYLATE
     Dosage: 2.5 MILLIGRAM, QD
     Route: 048
  4. VRAYLAR [Concomitant]
     Active Substance: CARIPRAZINE
     Dosage: 3 MILLIGRAM, QD
     Route: 048
  5. METOPROLOL SUCCINATE. [Concomitant]
     Active Substance: METOPROLOL SUCCINATE
     Dosage: 60 MILLIGRAM, QD
     Route: 065
  6. EDARBYCLOR [Concomitant]
     Active Substance: AZILSARTAN KAMEDOXOMIL\CHLORTHALIDONE
     Route: 065
  7. QUETIAPINE FUMARATE. [Concomitant]
     Active Substance: QUETIAPINE FUMARATE
     Dosage: 400 MILLIGRAM, QD
     Route: 048
  8. BRILINTA [Concomitant]
     Active Substance: TICAGRELOR
     Dosage: UNK UNK, BID
     Route: 065
  9. ISORDIL [Concomitant]
     Active Substance: ISOSORBIDE DINITRATE
     Dosage: 60 MILLIGRAM
     Route: 065
  10. ASPIRINE [Concomitant]
     Active Substance: ASPIRIN
     Dosage: UNK UNK, BID
     Route: 065
  11. ALPRAZOLAM. [Concomitant]
     Active Substance: ALPRAZOLAM
     Dosage: 1 MILLIGRAM, BID
     Route: 048
  12. EDARBI [Concomitant]
     Active Substance: AZILSARTAN KAMEDOXOMIL
     Dosage: 40 MILLIGRAM (FOR A WEEK)
  13. REPATHA [Suspect]
     Active Substance: EVOLOCUMAB
     Indication: PRODUCT USED FOR UNKNOWN INDICATION
     Dosage: 140 MILLIGRAM PER MILLILITRE, Q2WK
     Route: 058
     Dates: start: 2019, end: 20210309
  14. PLAVIX [Concomitant]
     Active Substance: CLOPIDOGREL BISULFATE
     Dosage: 75 MILLIGRAM, QD
     Route: 048
  15. AUSTEDO [Concomitant]
     Active Substance: DEUTETRABENAZINE
     Dosage: 9 MILLIGRAM, BID (WITH FOOD)
     Route: 048
  16. AMLODIPINE [Concomitant]
     Active Substance: AMLODIPINE BESYLATE
     Route: 065
  17. FLUOXETINE [Concomitant]
     Active Substance: FLUOXETINE HYDROCHLORIDE
     Dosage: 60 MILLIGRAM, QD
     Route: 048
  18. NITROGLYCERIN. [Concomitant]
     Active Substance: NITROGLYCERIN
     Indication: CHEST PAIN
     Dosage: 0.4 UNK (NO MORE THAN 5 PILLS IN 24 HOUR PERIOD SUBLINGUAL ONCE A DAY)
     Route: 060

REACTIONS (5)
  - Blood pressure increased [Recovering/Resolving]
  - Syncope [Recovered/Resolved]
  - Sinus node dysfunction [Not Recovered/Not Resolved]
  - Wrong technique in product usage process [Unknown]
  - Cough [Unknown]

NARRATIVE: CASE EVENT DATE: 20210223
